FAERS Safety Report 5295219-4 (Version None)
Quarter: 2007Q2

REPORT INFORMATION
  Report Type: 
  Country: None (occurrence: None)
  Receive Date: 20070406
  Receipt Date: 20070326
  Transmission Date: 20071010
  Serious: Yes (Other)
  Sender: FDA-Public Use
  Company Number: 082-20785-07040032

PATIENT
  Age: 76 Year
  Sex: Male

DRUGS (3)
  1. THALIDOMIDE [Suspect]
     Indication: MULTIPLE MYELOMA
     Dosage: 100 MG, QD, ORAL
     Route: 048
     Dates: start: 20060618, end: 20070201
  2. DEXAMETHASONE TAB [Concomitant]
  3. CLEXAN [Concomitant]

REACTIONS (1)
  - CHOREA [None]
